FAERS Safety Report 5883720-1 (Version None)
Quarter: 2008Q3

REPORT INFORMATION
  Report Type: 
  Country: None (occurrence: None)
  Receive Date: 20080911
  Receipt Date: 20080826
  Transmission Date: 20090109
  Serious: Yes (Other)
  Sender: FDA-Public Use
  Company Number: 8036497

PATIENT
  Age: 20 Year
  Sex: Male

DRUGS (4)
  1. KEPPRA [Suspect]
     Indication: CONVULSION
     Dosage: 500 MG 2/D PO
     Route: 048
     Dates: start: 20080801
  2. KEPPRA [Suspect]
     Indication: CONVULSION
     Dosage: 3000 MG 1/D PO
     Route: 048
     Dates: start: 20080823
  3. KEPPRA [Suspect]
     Indication: CONVULSION
     Dosage: IV
     Route: 042
     Dates: start: 20080801
  4. NOS HEADACHE MEDICINE [Concomitant]

REACTIONS (3)
  - AURA [None]
  - CONVULSION [None]
  - DRUG EFFECT DECREASED [None]
